FAERS Safety Report 4360999-9 (Version None)
Quarter: 2004Q2

REPORT INFORMATION
  Report Type: 
  Country: None (occurrence: None)
  Receive Date: 20040519
  Receipt Date: 20040519
  Transmission Date: 20050107
  Serious: Yes (Hospitalization)
  Sender: FDA-Public Use
  Company Number: None

PATIENT
  Age: 51 Year
  Sex: Female
  Weight: 138.3471 kg

DRUGS (8)
  1. AVASTIN [Suspect]
     Indication: COLON CANCER METASTATIC
     Dosage: 500 MG IV X1
     Route: 042
     Dates: start: 20040430
  2. DIOVAN HCT [Concomitant]
  3. GLUCOTROL [Concomitant]
  4. AVANDIA [Concomitant]
  5. LORTAB [Concomitant]
  6. FLUOROURACIL [Concomitant]
  7. LEUCOVORIN CALCIUM [Concomitant]
  8. OXILAPLATIN [Concomitant]

REACTIONS (6)
  - ABDOMINAL PAIN UPPER [None]
  - HEPATIC MASS [None]
  - HEPATIC STEATOSIS [None]
  - NAUSEA [None]
  - PAIN [None]
  - PANCREATITIS [None]
